FAERS Safety Report 10770600 (Version 1)
Quarter: 2015Q1

REPORT INFORMATION
  Report Type: Spontaneous
  Country: FR (occurrence: FR)
  Receive Date: 20150206
  Receipt Date: 20150206
  Transmission Date: 20150721
  Serious: Yes (Hospitalization)
  Sender: FDA-Public Use
  Company Number: FR-ASTRAZENECA-2015SE10797

PATIENT
  Age: 31322 Day
  Sex: Male

DRUGS (5)
  1. EFFEXOR [Suspect]
     Active Substance: VENLAFAXINE HYDROCHLORIDE
     Dosage: LONG RUN TREATMENT, 75 MILLIGRAM, EVERY DAY
     Route: 048
  2. SOTALOL. [Concomitant]
     Active Substance: SOTALOL
  3. DOLIPRANE [Concomitant]
     Active Substance: ACETAMINOPHEN
  4. XEROQUEL [Suspect]
     Active Substance: QUETIAPINE FUMARATE
     Indication: AGGRESSION
     Route: 048
     Dates: start: 20141117, end: 201412
  5. KARDEGIC [Concomitant]
     Active Substance: ASPIRIN LYSINE

REACTIONS (7)
  - Prostatitis [Unknown]
  - Inflammation [Unknown]
  - Hyperglycaemia [Unknown]
  - Confusional state [Recovering/Resolving]
  - Aphasia [Recovering/Resolving]
  - Product use issue [Recovered/Resolved]
  - Dysarthria [Recovering/Resolving]

NARRATIVE: CASE EVENT DATE: 20141117
